FAERS Safety Report 7468455-6 (Version None)
Quarter: 2011Q2

REPORT INFORMATION
  Report Type: 
  Country: None (occurrence: None)
  Receive Date: 20110509
  Receipt Date: 20100113
  Transmission Date: 20111010
  Serious: Yes (Other)
  Sender: FDA-Public Use
  Company Number: DE-GENENTECH-318230

PATIENT
  Age: 80 Year
  Sex: Male

DRUGS (2)
  1. UNSPECIFIED MEDICATION [Concomitant]
     Indication: ANTICOAGULANT THERAPY
     Dosage: UNK
  2. LUCENTIS [Suspect]
     Indication: AGE-RELATED MACULAR DEGENERATION
     Dosage: UNK
     Route: 031
     Dates: start: 20080820

REACTIONS (5)
  - CARDIOVASCULAR DISORDER [None]
  - NASOPHARYNGITIS [None]
  - METAMORPHOPSIA [None]
  - VISUAL ACUITY REDUCED [None]
  - MALAISE [None]
